FAERS Safety Report 23258114 (Version 1)
Quarter: 2023Q4

REPORT INFORMATION
  Report Type: Spontaneous
  Country: US (occurrence: US)
  Receive Date: 20231204
  Receipt Date: 20231204
  Transmission Date: 20240109
  Serious: No
  Sender: FDA-Public Use
  Company Number: US-SA-SAC20231122001047

PATIENT
  Age: 7 Year
  Sex: Female

DRUGS (1)
  1. DUPIXENT [Suspect]
     Active Substance: DUPILUMAB
     Indication: Dermatitis atopic
     Dosage: 300 MG, Q4W
     Route: 058

REACTIONS (7)
  - Eczema [Recovered/Resolved]
  - Therapeutic response shortened [Recovered/Resolved]
  - Pruritus [Recovered/Resolved]
  - Erythema [Recovered/Resolved]
  - Feeling hot [Recovered/Resolved]
  - Gait disturbance [Unknown]
  - Drug effect less than expected [Unknown]

NARRATIVE: CASE EVENT DATE: 20231029
